FAERS Safety Report 8502521-9 (Version None)
Quarter: 2012Q3

REPORT INFORMATION
  Report Type: 
  Country: None (occurrence: None)
  Receive Date: 20120711
  Receipt Date: 20120703
  Transmission Date: 20120928
  Serious: Yes (Other)
  Sender: FDA-Public Use
  Company Number: US-US-EMD SERONO, INC.-7143855

PATIENT
  Sex: Male

DRUGS (2)
  1. UNSPECIFIED MEDICATION FOR PREMEDICATON [Concomitant]
     Indication: PREMEDICATION
  2. REBIF [Suspect]
     Indication: MULTIPLE SCLEROSIS
     Route: 058
     Dates: start: 20120504

REACTIONS (1)
  - NEPHROLITHIASIS [None]
